FAERS Safety Report 16032689 (Version 1)
Quarter: 2019Q1

REPORT INFORMATION
  Report Type: Spontaneous
  Country: US (occurrence: US)
  Receive Date: 20190305
  Receipt Date: 20190305
  Transmission Date: 20190418
  Serious: No
  Sender: FDA-Public Use
  Company Number: US-GLAXOSMITHKLINE-US2019035908

PATIENT
  Sex: Male

DRUGS (1)
  1. VOLTAREN [Suspect]
     Active Substance: DICLOFENAC SODIUM
     Indication: THERMAL BURN
     Dosage: 1 UNK, BID
     Route: 061
     Dates: start: 20181005

REACTIONS (2)
  - Product use in unapproved indication [Unknown]
  - Off label use [Unknown]
